FAERS Safety Report 15622251 (Version 1)
Quarter: 2018Q4

REPORT INFORMATION
  Report Type: Report from Study
  Country: IT (occurrence: IT)
  Receive Date: 20181115
  Receipt Date: 20181115
  Transmission Date: 20190205
  Serious: Yes (Hospitalization)
  Sender: FDA-Public Use
  Company Number: IT-ASTELLAS-2018US048464

PATIENT
  Age: 68 Year
  Sex: Male
  Weight: 58 kg

DRUGS (4)
  1. BLINDED ENZALUTAMIDE [Suspect]
     Active Substance: ENZALUTAMIDE
     Indication: HORMONE-REFRACTORY PROSTATE CANCER
     Dosage: UNK UNK, ONCE DAILY
     Route: 048
     Dates: start: 20170531, end: 20180727
  2. ENZALUTAMIDE [Suspect]
     Active Substance: ENZALUTAMIDE
     Indication: HORMONE-REFRACTORY PROSTATE CANCER
     Route: 048
     Dates: start: 20160108, end: 20170517
  3. PREDNISOLONE. [Suspect]
     Active Substance: PREDNISOLONE
     Indication: HORMONE-REFRACTORY PROSTATE CANCER
     Route: 048
     Dates: start: 20170531, end: 20171206
  4. DOCETAXEL. [Suspect]
     Active Substance: DOCETAXEL
     Indication: HORMONE-REFRACTORY PROSTATE CANCER
     Dosage: UNK, OTHER
     Route: 065
     Dates: start: 20170531, end: 20171206

REACTIONS (5)
  - Vomiting [Recovered/Resolved]
  - Platelet disorder [Recovered/Resolved]
  - Lymphocyte count abnormal [Not Recovered/Not Resolved]
  - Nausea [Recovered/Resolved]
  - Neutrophil count abnormal [Not Recovered/Not Resolved]

NARRATIVE: CASE EVENT DATE: 20181104
